FAERS Safety Report 11728092 (Version 1)
Quarter: 2015Q4

REPORT INFORMATION
  Report Type: Spontaneous
  Country: ES (occurrence: ES)
  Receive Date: 20151112
  Receipt Date: 20151112
  Transmission Date: 20160304
  Serious: Yes (Hospitalization, Other)
  Sender: FDA-Public Use
  Company Number: ES-ASTRAZENECA-2015SF08667

PATIENT
  Age: 90 Year
  Sex: Female

DRUGS (7)
  1. PREVENCOR [Concomitant]
     Active Substance: ATORVASTATIN CALCIUM
     Dosage: 10 MG, 25 TABLETS
     Route: 048
  2. NEXIUM [Suspect]
     Active Substance: ESOMEPRAZOLE MAGNESIUM
     Dosage: 40 MG DAILY, LATENCY: 38 MONTHS
     Route: 048
     Dates: start: 201206
  3. ALDACTONE [Concomitant]
     Active Substance: SPIRONOLACTONE
     Dosage: 25 MG FILMCOATED TABLETS, 28 TABLETS
  4. SINTROM [Suspect]
     Active Substance: ACENOCOUMAROL
     Indication: ATRIAL FIBRILLATION
     Dosage: 2 MG DAILY, LATENCY: 51 MONTHS
     Route: 048
     Dates: start: 201105, end: 20150829
  5. ORFIDAL [Concomitant]
     Active Substance: LORAZEPAM
     Dosage: LATENCY: 49 MONTHS, 1 MG, 25 TABLETS
     Route: 048
     Dates: start: 201107
  6. NITRODERM [Concomitant]
     Active Substance: NITROGLYCERIN
     Dosage: LATENCY: 17 MONTHS, 5 MG/24H TRANSDERMAL PATCH, 30 PATHS
     Route: 062
     Dates: start: 201403
  7. SEGURIL [Concomitant]
     Active Substance: FUROSEMIDE
     Indication: DYSPNOEA
     Dosage: LATENCY: 17 MONTHS, 40 MG, 30 TABLETS
     Route: 048
     Dates: start: 201403

REACTIONS (1)
  - Iron deficiency anaemia [Recovered/Resolved]

NARRATIVE: CASE EVENT DATE: 20150828
